FAERS Safety Report 4475706-9 (Version None)
Quarter: 2004Q3

REPORT INFORMATION
  Report Type: 
  Country: None (occurrence: None)
  Receive Date: 20040923
  Receipt Date: 20040716
  Transmission Date: 20050211
  Serious: No
  Sender: FDA-Public Use
  Company Number: USA040772888

PATIENT
  Age: 58 Year
  Sex: Female

DRUGS (11)
  1. FORTEO [Suspect]
     Indication: OSTEOPOROSIS
     Dosage: 20 UG DAY
     Dates: start: 20040709
  2. CALCIUM [Concomitant]
  3. GLIPIZIDE [Concomitant]
  4. METFORMIN HCL [Concomitant]
  5. PLAVIX [Concomitant]
  6. CARDIZEM [Concomitant]
  7. IMDUR [Concomitant]
  8. CLONAZEPAM [Concomitant]
  9. VIOXX [Concomitant]
  10. THYROID TAB [Concomitant]
  11. NEXIUM [Concomitant]

REACTIONS (7)
  - ASTHENIA [None]
  - DIARRHOEA [None]
  - EPISTAXIS [None]
  - FEELING ABNORMAL [None]
  - FEELING HOT AND COLD [None]
  - NAUSEA [None]
  - VISUAL ACUITY REDUCED [None]
